FAERS Safety Report 6229418-1 (Version None)
Quarter: 2009Q2

REPORT INFORMATION
  Report Type: 
  Country: None (occurrence: None)
  Receive Date: 20090615
  Receipt Date: 20090603
  Transmission Date: 20091009
  Serious: Yes (Hospitalization, Congenital Anomaly)
  Sender: FDA-Public Use
  Company Number: A0680376A

PATIENT
  Sex: Female

DRUGS (4)
  1. PAXIL [Suspect]
     Indication: DEPRESSION
     Dosage: 20MG PER DAY
     Dates: start: 19980101, end: 20080101
  2. VITAMIN TAB [Concomitant]
  3. PHENERGAN [Concomitant]
  4. TEGRETOL [Concomitant]

REACTIONS (11)
  - ATRIAL SEPTAL DEFECT [None]
  - BUNDLE BRANCH BLOCK RIGHT [None]
  - CARDIAC FAILURE CONGESTIVE [None]
  - COMMUNICATION DISORDER [None]
  - DRUG EXPOSURE DURING PREGNANCY [None]
  - HYPERBILIRUBINAEMIA NEONATAL [None]
  - MATERNAL DRUGS AFFECTING FOETUS [None]
  - PERSISTENT FOETAL CIRCULATION [None]
  - PULMONARY VALVE STENOSIS [None]
  - VENTRICULAR HYPERTROPHY [None]
  - VENTRICULAR SEPTAL DEFECT [None]
